FAERS Safety Report 19588356 (Version 1)
Quarter: 2021Q3

REPORT INFORMATION
  Report Type: Spontaneous
  Country: US (occurrence: US)
  Receive Date: 20210721
  Receipt Date: 20210721
  Transmission Date: 20211014
  Serious: No
  Sender: FDA-Public Use
  Company Number: None

PATIENT
  Age: 75 Year
  Sex: Male
  Weight: 104.4 kg

DRUGS (12)
  1. LEVETIRACETAM 1000MG [Concomitant]
     Active Substance: LEVETIRACETAM
  2. LATANOPROST 0.005% [Concomitant]
     Active Substance: LATANOPROST
  3. FAMOTIDINE 20MG [Concomitant]
     Active Substance: FAMOTIDINE
  4. ONDANSETRON 8MG [Concomitant]
     Active Substance: ONDANSETRON
  5. AMLODIPINE [Concomitant]
     Active Substance: AMLODIPINE BESYLATE
  6. TEMOZOLOMIDE. [Suspect]
     Active Substance: TEMOZOLOMIDE
     Indication: BRAIN NEOPLASM MALIGNANT
     Dosage: ?          OTHER FREQUENCY:QD 5/28 DAYS;?
     Route: 048
     Dates: start: 20210619
  7. IRBESARTAN 150MG [Concomitant]
     Active Substance: IRBESARTAN
  8. METOPROLOL TARTRATE 25MG [Concomitant]
     Active Substance: METOPROLOL TARTRATE
  9. ATORVASTATIN 20MG [Concomitant]
     Active Substance: ATORVASTATIN
  10. DOCUSATE 100MG [Concomitant]
     Active Substance: DOCUSATE
  11. INDAPAMIDE 1.25MG [Concomitant]
  12. SPIRONOLACTONE 50MG [Concomitant]
     Active Substance: SPIRONOLACTONE

REACTIONS (4)
  - Nausea [None]
  - Dysarthria [None]
  - Memory impairment [None]
  - Alopecia [None]

NARRATIVE: CASE EVENT DATE: 20210720
